APPROVED DRUG PRODUCT: FLURAZEPAM HYDROCHLORIDE
Active Ingredient: FLURAZEPAM HYDROCHLORIDE
Strength: 15MG
Dosage Form/Route: CAPSULE;ORAL
Application: A070345 | Product #002 | TE Code: AB
Applicant: RISING PHARMA HOLDINGS INC
Approved: Nov 27, 1985 | RLD: No | RS: No | Type: RX